FAERS Safety Report 11844963 (Version 2)
Quarter: 2016Q1

REPORT INFORMATION
  Report Type: Report from Study
  Country: JP (occurrence: JP)
  Receive Date: 20151217
  Receipt Date: 20160120
  Transmission Date: 20160526
  Serious: Yes (Death, Life-Threatening)
  Sender: FDA-Public Use
  Company Number: PHHY2013JP173700

PATIENT
  Sex: Female
  Weight: 37 kg

DRUGS (2)
  1. PAZOPANIB [Suspect]
     Active Substance: PAZOPANIB
     Indication: LEIOMYOSARCOMA
     Dosage: 800 MG, QD
     Route: 048
     Dates: start: 20121223, end: 20130218
  2. PAZOPANIB [Suspect]
     Active Substance: PAZOPANIB
     Dosage: 200 MG, BID
     Route: 048
     Dates: start: 20130424, end: 20130603

REACTIONS (5)
  - Haemorrhagic diathesis [Not Recovered/Not Resolved]
  - General physical health deterioration [Fatal]
  - Nausea [Recovered/Resolved]
  - Malignant neoplasm progression [Fatal]
  - Blood pressure increased [Recovered/Resolved]

NARRATIVE: CASE EVENT DATE: 20130107
